FAERS Safety Report 16666540 (Version 1)
Quarter: 2019Q3

REPORT INFORMATION
  Report Type: Spontaneous
  Country: US (occurrence: US)
  Receive Date: 20190805
  Receipt Date: 20190805
  Transmission Date: 20191004
  Serious: Yes (Death, Hospitalization)
  Sender: FDA-Public Use
  Company Number: US-EMCURE PHARMACEUTICALS LTD-2019-EPL-0481

PATIENT
  Age: 58 Year
  Sex: Male

DRUGS (2)
  1. DAPSONE. [Suspect]
     Active Substance: DAPSONE
     Indication: ANTIBIOTIC PROPHYLAXIS
     Dosage: 100 MILLIGRAM, DAILY
  2. SULFAMETHOXAZOLE, TRIMETHOPRIM [Suspect]
     Active Substance: SULFAMETHOXAZOLE\TRIMETHOPRIM
     Indication: ANTIBIOTIC PROPHYLAXIS
     Dosage: 160/800 MG, DAILY

REACTIONS (5)
  - Drug-induced liver injury [Not Recovered/Not Resolved]
  - Therapeutic product cross-reactivity [Unknown]
  - Hepatorenal syndrome [Fatal]
  - Vanishing bile duct syndrome [Not Recovered/Not Resolved]
  - Multiple organ dysfunction syndrome [Fatal]
